FAERS Safety Report 4907407-4 (Version None)
Quarter: 2006Q1

REPORT INFORMATION
  Report Type: 
  Country: None (occurrence: None)
  Receive Date: 20060208
  Receipt Date: 20060208
  Transmission Date: 20060701
  Serious: No
  Sender: FDA-Public Use
  Company Number: None

PATIENT
  Age: 80 Year
  Sex: Male
  Weight: 81.9 kg

DRUGS (1)
  1. LASIX [Suspect]
     Indication: CARDIAC FAILURE
     Dosage: 20 MG
     Dates: start: 20051128, end: 20051128

REACTIONS (1)
  - ORTHOSTATIC HYPOTENSION [None]
